FAERS Safety Report 4737842-9 (Version None)
Quarter: 2005Q3

REPORT INFORMATION
  Report Type: 
  Country: None (occurrence: None)
  Receive Date: 20050803
  Receipt Date: 20050722
  Transmission Date: 20060218
  Serious: Yes (Hospitalization, Disabling)
  Sender: FDA-Public Use
  Company Number: GXKR2005US01364

PATIENT
  Age: 38 Year
  Sex: Male

DRUGS (9)
  1. AMOXICILLIN AND CLAVULANATE POTASSIUM [Suspect]
     Indication: KLEBSIELLA INFECTION
  2. METRONIDAZOLE [Suspect]
     Dosage: UNK
     Route: 065
  3. PIPERACILLIN [Suspect]
     Dosage: UNK
     Route: 065
  4. VANCOMYCIN [Suspect]
     Dosage: UNK
     Route: 065
  5. CASPOFUNGIN [Suspect]
     Dosage: UNK
     Route: 065
  6. MERCAPTOPURINE [Concomitant]
  7. BALSALAZIDE [Concomitant]
  8. HEPARIN [Concomitant]
  9. AMPICILLIN SODIUM [Concomitant]

REACTIONS (22)
  - ABDOMINAL DISTENSION [None]
  - ABDOMINAL PAIN [None]
  - APHASIA [None]
  - ARTHRITIS [None]
  - BLINDNESS UNILATERAL [None]
  - DIARRHOEA HAEMORRHAGIC [None]
  - DIPLOPIA [None]
  - DYSPNOEA [None]
  - ERYTHEMA [None]
  - JOINT WARMTH [None]
  - MACULOPATHY [None]
  - OEDEMA PERIPHERAL [None]
  - OPTIC NEUROPATHY [None]
  - PAIN [None]
  - PAIN IN EXTREMITY [None]
  - PALPABLE PURPURA [None]
  - PANCREATIC ENZYMES INCREASED [None]
  - PYREXIA [None]
  - RETINAL HAEMORRHAGE [None]
  - RETINAL VASCULITIS [None]
  - TESTICULAR PAIN [None]
  - VITRITIS [None]
